FAERS Safety Report 12012988 (Version 1)
Quarter: 2016Q1

REPORT INFORMATION
  Report Type: Report from Study
  Country: AR (occurrence: AR)
  Receive Date: 20160205
  Receipt Date: 20160205
  Transmission Date: 20160526
  Serious: Yes (Other)
  Sender: FDA-Public Use
  Company Number: AR-EMD SERONO-8066115

PATIENT
  Age: 13 Year
  Sex: Male

DRUGS (1)
  1. SAIZEN [Suspect]
     Active Substance: SOMATROPIN
     Indication: RENAL DISORDER
     Dates: start: 20150504

REACTIONS (2)
  - Off label use [Unknown]
  - Peritonitis [Unknown]

NARRATIVE: CASE EVENT DATE: 20150504
